FAERS Safety Report 4501571-7 (Version None)
Quarter: 2004Q3

REPORT INFORMATION
  Report Type: 
  Country: None (occurrence: None)
  Receive Date: 20040928
  Receipt Date: 20040824
  Transmission Date: 20050211
  Serious: No
  Sender: FDA-Public Use
  Company Number: 04P-163-0271369-00

PATIENT
  Age: 66 Year
  Sex: Male
  Weight: 86.1834 kg

DRUGS (3)
  1. HUMIRA [Suspect]
     Indication: RHEUMATOID ARTHRITIS
     Dosage: 40 MG, 1 IN 2 WK, SUBCUTANEOUS
     Route: 058
     Dates: start: 20040601, end: 20040801
  2. SULINDAC [Concomitant]
  3. LEFLUNOMIDE [Concomitant]

REACTIONS (4)
  - ANAEMIA [None]
  - FAECES DISCOLOURED [None]
  - ULTRASOUND LIVER ABNORMAL [None]
  - UPPER RESPIRATORY TRACT INFECTION [None]
